FAERS Safety Report 21677312 (Version 1)
Quarter: 2022Q4

REPORT INFORMATION
  Report Type: Report from Study
  Country: US (occurrence: US)
  Receive Date: 20221203
  Receipt Date: 20221203
  Transmission Date: 20230112
  Serious: No
  Sender: FDA-Public Use
  Company Number: US-ABBVIE-4190900

PATIENT
  Sex: Female

DRUGS (1)
  1. HUMIRA [Suspect]
     Active Substance: ADALIMUMAB
     Indication: Rheumatoid arthritis
     Dosage: THE ONSET DATE FOR ADVERSE EVENT MEMORY PROBLEMS WAS 2022 BUT DUE TO SYSTEM LIMITATION IT WAS NOT...
     Route: 058

REACTIONS (1)
  - Memory impairment [Not Recovered/Not Resolved]
